FAERS Safety Report 21994403 (Version 3)
Quarter: 2023Q2

REPORT INFORMATION
  Report Type: Spontaneous
  Country: US (occurrence: US)
  Receive Date: 20230215
  Receipt Date: 20230601
  Transmission Date: 20230721
  Serious: Yes (Death, Life-Threatening, Hospitalization)
  Sender: FDA-Public Use
  Company Number: US-PTC THERAPEUTICS INC.-US-2023PTC000229

PATIENT
  Age: 11 Year
  Sex: Male
  Weight: 49.206 kg

DRUGS (12)
  1. EMFLAZA [Suspect]
     Active Substance: DEFLAZACORT
     Indication: Becker^s muscular dystrophy
     Dosage: 1.5 MILLILITER, QD
     Route: 048
     Dates: start: 20210824
  2. VITAMIN C [Concomitant]
     Active Substance: ASCORBIC ACID
     Indication: Product used for unknown indication
     Dosage: 250 MG, QD
  3. BACILLUS COAGULANS [Concomitant]
     Active Substance: BACILLUS COAGULANS
     Indication: Product used for unknown indication
     Dosage: 1 DOSAGE FORM, QD
  4. VITAMIN D3 [Concomitant]
     Active Substance: CHOLECALCIFEROL
     Indication: Product used for unknown indication
     Dosage: 2000 UNIT, QD
  5. CLINDAMYCIN HYDROCHLORIDE [Concomitant]
     Active Substance: CLINDAMYCIN HYDROCHLORIDE
     Indication: Product used for unknown indication
     Dosage: 1% GEL, APPLY TOPICALLY, BID
     Route: 061
  6. EPANED [Concomitant]
     Active Substance: ENALAPRIL MALEATE
     Indication: Product used for unknown indication
     Dosage: 2.5 ML, QD
     Dates: start: 20220223
  7. BENZAMYCIN [Concomitant]
     Active Substance: BENZOYL PEROXIDE\ERYTHROMYCIN
     Indication: Product used for unknown indication
     Dosage: 1% GEL, APPLY TOPICALLY, BID
     Route: 061
     Dates: start: 20220510, end: 20230510
  8. NEURONTIN [Concomitant]
     Active Substance: GABAPENTIN
     Indication: Product used for unknown indication
     Dosage: 2 ML, BID
     Dates: start: 20220818
  9. NIZORAL [Concomitant]
     Active Substance: KETOCONAZOLE
     Indication: Product used for unknown indication
     Dosage: UNK, BID
  10. MINERALS\VITAMINS [Concomitant]
     Active Substance: MINERALS\VITAMINS
     Indication: Product used for unknown indication
     Dosage: 1 DOSAGE FORM, QD
  11. TUMS [Concomitant]
     Active Substance: CALCIUM CARBONATE
     Indication: Product used for unknown indication
  12. PREDNISONE [Concomitant]
     Active Substance: PREDNISONE
     Indication: Product used for unknown indication

REACTIONS (13)
  - Becker^s muscular dystrophy [Fatal]
  - Rhabdomyolysis [Unknown]
  - Pain in extremity [Unknown]
  - Chromaturia [Unknown]
  - Myalgia [Unknown]
  - Anxiety [Unknown]
  - Gait disturbance [Unknown]
  - Asthenia [Unknown]
  - Decreased activity [Unknown]
  - Foot deformity [Unknown]
  - Choking [Unknown]
  - Constipation [Unknown]
  - Weight increased [Unknown]

NARRATIVE: CASE EVENT DATE: 20220101
